FAERS Safety Report 5267782-0 (Version None)
Quarter: 2007Q1

REPORT INFORMATION
  Report Type: 
  Country: None (occurrence: None)
  Receive Date: 20070316
  Receipt Date: 20070306
  Transmission Date: 20070707
  Serious: Yes (Other)
  Sender: FDA-Public Use
  Company Number: US-PFIZER INC-2007018027

PATIENT
  Sex: Male

DRUGS (1)
  1. LYRICA [Suspect]

REACTIONS (6)
  - BALANCE DISORDER [None]
  - BRADYPHRENIA [None]
  - DIZZINESS [None]
  - MUSCLE DISORDER [None]
  - NAUSEA [None]
  - VISION BLURRED [None]
